FAERS Safety Report 12433163 (Version 1)
Quarter: 2016Q2

REPORT INFORMATION
  Report Type: Spontaneous
  Country: US (occurrence: US)
  Receive Date: 20160603
  Receipt Date: 20160603
  Transmission Date: 20160815
  Serious: Yes (Hospitalization, Other)
  Sender: FDA-Public Use
  Company Number: US-TEVA-663040USA

PATIENT
  Age: 42 Year
  Sex: Female

DRUGS (2)
  1. VERAPAMIL [Suspect]
     Active Substance: VERAPAMIL HYDROCHLORIDE
     Route: 048
  2. CITALOPRAM [Suspect]
     Active Substance: CITALOPRAM HYDROBROMIDE
     Route: 048

REACTIONS (8)
  - Bradycardia [Recovering/Resolving]
  - Rhabdomyolysis [Recovering/Resolving]
  - Cardio-respiratory arrest [Recovering/Resolving]
  - Coma [Recovering/Resolving]
  - Acute respiratory distress syndrome [Recovering/Resolving]
  - Acute kidney injury [Recovering/Resolving]
  - Metabolic acidosis [Recovering/Resolving]
  - Respiratory failure [Recovering/Resolving]
